FAERS Safety Report 20973540 (Version 2)
Quarter: 2022Q2

REPORT INFORMATION
  Report Type: Spontaneous
  Country: US (occurrence: None)
  Receive Date: 20220617
  Receipt Date: 20220624
  Transmission Date: 20220721
  Serious: Yes (Death, Other)
  Sender: FDA-Public Use
  Company Number: US-ROCHE-3119085

PATIENT
  Age: 87 Year
  Sex: Female

DRUGS (1)
  1. ERIVEDGE [Suspect]
     Active Substance: VISMODEGIB
     Indication: Basal cell carcinoma
     Route: 048
     Dates: start: 202203, end: 202205

REACTIONS (2)
  - Neoplasm malignant [Fatal]
  - Basal cell carcinoma [Unknown]

NARRATIVE: CASE EVENT DATE: 20220601
